FAERS Safety Report 10767627 (Version 1)
Quarter: 2015Q1

REPORT INFORMATION
  Report Type: Spontaneous
  Country: US (occurrence: US)
  Receive Date: 20150205
  Receipt Date: 20150205
  Transmission Date: 20150721
  Serious: Yes (Death, Hospitalization, Other)
  Sender: FDA-Public Use
  Company Number: US-TEVA-538488USA

PATIENT
  Age: 8 Decade
  Sex: Male

DRUGS (2)
  1. INFLIXIMAB [Concomitant]
     Active Substance: INFLIXIMAB
     Indication: RHEUMATOID ARTHRITIS
     Route: 065
  2. CEFDINIR. [Suspect]
     Active Substance: CEFDINIR
     Indication: SINUSITIS
     Dosage: DOSAGE NOT STATED
     Route: 065

REACTIONS (3)
  - Multi-organ failure [Unknown]
  - Death [Fatal]
  - Clostridium difficile infection [Unknown]
